FAERS Safety Report 6532139-9 (Version None)
Quarter: 2010Q1

REPORT INFORMATION
  Report Type: 
  Country: None (occurrence: None)
  Receive Date: 20100107
  Receipt Date: 20100107
  Transmission Date: 20100710
  Serious: Yes (Other)
  Sender: FDA-Public Use
  Company Number: None

PATIENT
  Age: 53 Year
  Sex: Female
  Weight: 90.7194 kg

DRUGS (1)
  1. ZICAM PRODUCTS/COLD/ALLE SEASON/NON-DROWSY ZICAM [Suspect]
     Dosage: PER INSTRUCTIONS

REACTIONS (3)
  - ANOSMIA [None]
  - HYPOSMIA [None]
  - IRRITABILITY [None]
